FAERS Safety Report 23000387 (Version 2)
Quarter: 2024Q3

REPORT INFORMATION
  Report Type: Spontaneous
  Country: US (occurrence: US)
  Receive Date: 20230928
  Receipt Date: 20240916
  Transmission Date: 20241016
  Serious: No
  Sender: KVK-TECH
  Company Number: US-KVK-TECH, INC-20230600100

PATIENT

DRUGS (2)
  1. OXYCODONE HYDROCHLORIDE [Suspect]
     Active Substance: OXYCODONE HYDROCHLORIDE
     Indication: Pain
     Dosage: 15 MILLIGRAM (EVERY 3 HOURS, (SIX TO EIGHT TIMES A DAY))
     Route: 048
     Dates: start: 20230605, end: 20230607
  2. OXYCODONE HYDROCHLORIDE [Suspect]
     Active Substance: OXYCODONE HYDROCHLORIDE
     Dosage: 15 MILLIGRAM (EVERY 3 HOURS, (SIX TO EIGHT TIMES A DAY))
     Route: 048
     Dates: start: 2018, end: 2023

REACTIONS (4)
  - Throat irritation [Recovered/Resolved]
  - Dyspepsia [Recovered/Resolved]
  - Product odour abnormal [Unknown]
  - Suspected product contamination [Unknown]

NARRATIVE: CASE EVENT DATE: 20230601
